FAERS Safety Report 15771769 (Version 1)
Quarter: 2018Q4

REPORT INFORMATION
  Report Type: Spontaneous
  Country: US (occurrence: US)
  Receive Date: 20181228
  Receipt Date: 20181228
  Transmission Date: 20190205
  Serious: Yes (Other)
  Sender: FDA-Public Use
  Company Number: None

PATIENT
  Age: 69 Year
  Sex: Female
  Weight: 47.25 kg

DRUGS (2)
  1. VORTIOXETINE HYDROBROMIDE [Suspect]
     Active Substance: VORTIOXETINE HYDROBROMIDE
     Indication: DECREASED APPETITE
     Route: 048
     Dates: start: 20181214, end: 20181223
  2. VORTIOXETINE HYDROBROMIDE [Suspect]
     Active Substance: VORTIOXETINE HYDROBROMIDE
     Indication: DEPRESSION
     Route: 048
     Dates: start: 20181214, end: 20181223

REACTIONS (10)
  - Musculoskeletal stiffness [None]
  - Paraesthesia [None]
  - Heart rate irregular [None]
  - Myalgia [None]
  - Rectal haemorrhage [None]
  - Arthralgia [None]
  - Tinnitus [None]
  - Joint stiffness [None]
  - Disturbance in attention [None]
  - Irritable bowel syndrome [None]

NARRATIVE: CASE EVENT DATE: 20181223
